FAERS Safety Report 5804420-X (Version None)
Quarter: 2008Q3

REPORT INFORMATION
  Report Type: 
  Country: None (occurrence: None)
  Receive Date: 20080709
  Receipt Date: 20080703
  Transmission Date: 20090109
  Serious: Yes (Hospitalization, Other)
  Sender: FDA-Public Use
  Company Number: BR-ABBOTT-08P-020-0439022-00

PATIENT
  Sex: Female
  Weight: 90 kg

DRUGS (8)
  1. HUMIRA [Suspect]
     Indication: RHEUMATOID ARTHRITIS
     Route: 058
     Dates: start: 20060601, end: 20070101
  2. HUMIRA [Suspect]
     Route: 058
     Dates: start: 20070101, end: 20070801
  3. HUMIRA [Suspect]
     Route: 058
     Dates: start: 20071001
  4. PREDNISONE TAB [Interacting]
     Indication: RHEUMATOID ARTHRITIS
  5. PREDNISONE TAB [Interacting]
  6. MAGISTRAL W/CHLOROQUINE, UNKNOWN MEDICATION, AND PANTOPRAZOLE [Concomitant]
     Indication: RHEUMATOID ARTHRITIS
  7. SERUM WITH UNKNOWN MEDICATIONS [Concomitant]
     Indication: DRUG USE FOR UNKNOWN INDICATION
     Dates: start: 20070813, end: 20070814
  8. ANESTHETICS, GENERAL [Concomitant]
     Indication: DRUG USE FOR UNKNOWN INDICATION

REACTIONS (9)
  - CATARACT [None]
  - CHILLS [None]
  - CHOLELITHIASIS [None]
  - DRUG INTERACTION [None]
  - HYPERTENSION [None]
  - INTRAOCULAR PRESSURE INCREASED [None]
  - KERATOCONUS [None]
  - NAUSEA [None]
  - TRANSPLANT REJECTION [None]
